FAERS Safety Report 5844380-9 (Version None)
Quarter: 2008Q3

REPORT INFORMATION
  Report Type: 
  Country: None (occurrence: None)
  Receive Date: 20080813
  Receipt Date: 20080804
  Transmission Date: 20090109
  Serious: Yes (Other)
  Sender: FDA-Public Use
  Company Number: US-GENENTECH-265768

PATIENT
  Sex: Male
  Weight: 83.5 kg

DRUGS (4)
  1. HUMATROPE [Suspect]
     Indication: GROWTH HORMONE DEFICIENCY
     Dosage: 6 MG, 6/WEEK
     Route: 058
     Dates: start: 20030930, end: 20070911
  2. DEPAKOTE [Concomitant]
     Indication: DRUG USE FOR UNKNOWN INDICATION
     Dosage: 250 MG, QAM
     Route: 048
  3. RITALIN [Concomitant]
     Indication: DRUG USE FOR UNKNOWN INDICATION
     Dosage: 40 MG, QHS
     Route: 048
  4. RITALIN [Concomitant]
     Dosage: 80 MG, QAM

REACTIONS (1)
  - NEOPLASM MALIGNANT [None]
